FAERS Safety Report 8605289-0 (Version None)
Quarter: 2012Q3

REPORT INFORMATION
  Report Type: 
  Country: None (occurrence: None)
  Receive Date: 20120820
  Receipt Date: 20120809
  Transmission Date: 20120928
  Serious: Yes (Hospitalization)
  Sender: FDA-Public Use
  Company Number: US-BAYER-2012-082720

PATIENT
  Age: 29 Year
  Sex: Female
  Weight: 106.8 kg

DRUGS (6)
  1. ALDACTONE [Concomitant]
     Indication: HIRSUTISM
     Dosage: 100 MG, UNK
     Route: 048
     Dates: start: 20080808
  2. YAZ [Suspect]
     Indication: HIRSUTISM
  3. CALCIUM +VIT D [Concomitant]
     Dosage: UNK
     Route: 048
     Dates: start: 20080808
  4. PRILOSEC [Concomitant]
     Dosage: UNK
     Route: 048
     Dates: start: 20080808
  5. PROMETHAZI/LIPOIL LI/POLO (PROMETHAZINE/LECITHIN ISOPROPYL PALMITA [Concomitant]
     Dosage: UNK
     Dates: start: 20100629
  6. CELEBREX [Concomitant]
     Dosage: 100 MG, UNK
     Route: 048
     Dates: start: 20080808

REACTIONS (2)
  - DEEP VEIN THROMBOSIS [None]
  - THROMBOPHLEBITIS SUPERFICIAL [None]
